FAERS Safety Report 15857673 (Version 2)
Quarter: 2019Q1

REPORT INFORMATION
  Report Type: Spontaneous
  Country: UY (occurrence: UY)
  Receive Date: 20190123
  Receipt Date: 20190226
  Transmission Date: 20190417
  Serious: Yes (Other)
  Sender: FDA-Public Use
  Company Number: UY-CHEPLA-C20181634

PATIENT
  Age: 63 Year
  Sex: Female

DRUGS (2)
  1. XENICAL [Suspect]
     Active Substance: ORLISTAT
     Indication: WEIGHT DECREASED
     Dosage: START 15 TO YEARS AGO; 3 OR 4 MONTHS A YEAR ONLY AT LUNCH TIME.; USED IT FOR 3 OR 4 YEARS
     Route: 048
  2. VITAMIN B19 [Concomitant]
     Indication: GASTRITIS
     Dosage: SHE BEGAN THE TREATMENT WITH INJECTIONS ONCE A WEEK
     Route: 042

REACTIONS (1)
  - Intestinal metaplasia [Not Recovered/Not Resolved]

NARRATIVE: CASE EVENT DATE: 201802
